FAERS Safety Report 14503489 (Version 1)
Quarter: 2018Q1

REPORT INFORMATION
  Report Type: Spontaneous
  Country: US (occurrence: US)
  Receive Date: 20180208
  Receipt Date: 20180208
  Transmission Date: 20180509
  Serious: No
  Sender: FDA-Public Use
  Company Number: US-JNJFOC-20171124676

PATIENT
  Age: 92 Year
  Sex: Female
  Weight: 79.38 kg

DRUGS (1)
  1. TYLENOL EXTRA STRENGTH [Suspect]
     Active Substance: ACETAMINOPHEN
     Indication: LIMB DISCOMFORT
     Dosage: ABOUT 2 WEEKS
     Route: 065
     Dates: end: 20171120

REACTIONS (2)
  - Incorrect dose administered [Unknown]
  - Constipation [Not Recovered/Not Resolved]
